FAERS Safety Report 5348377-7 (Version None)
Quarter: 2007Q2

REPORT INFORMATION
  Report Type: 
  Country: None (occurrence: None)
  Receive Date: 20070606
  Receipt Date: 20070529
  Transmission Date: 20071010
  Serious: Yes (Other)
  Sender: FDA-Public Use
  Company Number: US-GENENTECH-242129

PATIENT
  Age: 11 Year
  Sex: Female
  Weight: 40.363 kg

DRUGS (1)
  1. NUTROPIN AQ [Suspect]
     Indication: TURNER'S SYNDROME
     Dosage: 1.6 MG, QD
     Route: 058
     Dates: start: 20070402

REACTIONS (1)
  - PETIT MAL EPILEPSY [None]
